FAERS Safety Report 20127689 (Version 1)
Quarter: 2021Q4

REPORT INFORMATION
  Report Type: Report from Study
  Country: US (occurrence: US)
  Receive Date: 20211129
  Receipt Date: 20211129
  Transmission Date: 20220303
  Serious: Yes (Hospitalization, Other)
  Sender: FDA-Public Use
  Company Number: US-GILEAD-2021-0558279

PATIENT
  Sex: Male

DRUGS (1)
  1. COBICISTAT\ELVITEGRAVIR\EMTRICITABINE\TENOFOVIR [Suspect]
     Active Substance: COBICISTAT\ELVITEGRAVIR\EMTRICITABINE\TENOFOVIR
     Indication: HIV infection
     Dosage: 1 DOSAGE FORM, QD
     Route: 048

REACTIONS (5)
  - Psychotic disorder [Unknown]
  - Seizure [Unknown]
  - Weight decreased [Unknown]
  - Nervous system disorder [Unknown]
  - Incoherent [Recovering/Resolving]

NARRATIVE: CASE EVENT DATE: 20210101
